FAERS Safety Report 24234193 (Version 1)
Quarter: 2024Q3

REPORT INFORMATION
  Report Type: Spontaneous
  Country: US (occurrence: US)
  Receive Date: 20240821
  Receipt Date: 20240821
  Transmission Date: 20241017
  Serious: No
  Sender: SANOFI AVENTIS
  Company Number: US-SA-SAC20240816000371

PATIENT
  Sex: Male
  Weight: 86 kg

DRUGS (3)
  1. DUPIXENT [Suspect]
     Active Substance: DUPILUMAB
     Indication: Nasal polyps
     Dosage: 300 MG, QOW
     Route: 058
  2. COLCHICINE [Concomitant]
     Active Substance: COLCHICINE
  3. ALLOPURINOL [Concomitant]
     Active Substance: ALLOPURINOL

REACTIONS (1)
  - Gout [Unknown]
